FAERS Safety Report 17257289 (Version 7)
Quarter: 2021Q1

REPORT INFORMATION
  Report Type: Report from Study
  Country: FR (occurrence: FR)
  Receive Date: 20200110
  Receipt Date: 20210223
  Transmission Date: 20210419
  Serious: Yes (Hospitalization)
  Sender: FDA-Public Use
  Company Number: NVSC2020FR003826

PATIENT
  Age: 34 Year
  Sex: Male
  Weight: 95 kg

DRUGS (5)
  1. KARDEGIC [Concomitant]
     Active Substance: ASPIRIN DL-LYSINE
     Indication: ACUTE CORONARY SYNDROME
     Dosage: 75 MG, QD
     Route: 048
     Dates: start: 20190910
  2. BISOPROLOL [Concomitant]
     Active Substance: BISOPROLOL
     Indication: ACUTE CORONARY SYNDROME
     Dosage: 1 MG, QD
     Route: 048
     Dates: start: 20190916, end: 20200105
  3. SACUBITRIL,VALSARTAN [Suspect]
     Active Substance: SACUBITRIL\VALSARTAN
     Indication: ACUTE MYOCARDIAL INFARCTION
     Dosage: 1 MG, QD
     Route: 048
     Dates: start: 20190911
  4. TICAGRELOR. [Concomitant]
     Active Substance: TICAGRELOR
     Indication: ACUTE CORONARY SYNDROME
     Dosage: 180 MG, QD
     Route: 048
     Dates: start: 20190909
  5. ATORVASTATIN [Suspect]
     Active Substance: ATORVASTATIN
     Indication: DYSLIPIDAEMIA
     Dosage: 80 MG, QD
     Route: 048
     Dates: start: 20190909

REACTIONS (4)
  - Headache [Recovered/Resolved]
  - Non-cardiac chest pain [Recovered/Resolved]
  - Nausea [Recovered/Resolved]
  - Diarrhoea [Recovered/Resolved]

NARRATIVE: CASE EVENT DATE: 20200106
